FAERS Safety Report 5187968-3 (Version None)
Quarter: 2006Q4

REPORT INFORMATION
  Report Type: 
  Country: None (occurrence: None)
  Receive Date: 20061215
  Receipt Date: 20061215
  Transmission Date: 20070319
  Serious: Yes (Other)
  Sender: FDA-Public Use
  Company Number: None

PATIENT
  Age: 82 Year
  Sex: Male
  Weight: 71.2 kg

DRUGS (1)
  1. AMOXICILLIN [Suspect]

REACTIONS (2)
  - RASH [None]
  - URTICARIA [None]
